FAERS Safety Report 5420781-8 (Version None)
Quarter: 2007Q3

REPORT INFORMATION
  Report Type: 
  Country: None (occurrence: None)
  Receive Date: 20070821
  Receipt Date: 20070817
  Transmission Date: 20080115
  Serious: Yes (Hospitalization)
  Sender: FDA-Public Use
  Company Number: FRWYE185917AUG07

PATIENT
  Sex: Female

DRUGS (4)
  1. EFFEXOR XR [Suspect]
     Indication: DEPRESSION
     Dosage: 75 MG TOTAL DAILY
     Route: 048
     Dates: start: 20070720, end: 20070724
  2. NOCERTONE [Suspect]
     Indication: HEADACHE
     Dosage: UNKNOWN
     Route: 048
     Dates: start: 20070721, end: 20070724
  3. TERCIAN [Suspect]
     Indication: DEPRESSION
     Route: 048
     Dates: start: 20070601, end: 20070719
  4. TERCIAN [Suspect]
     Route: 048
     Dates: start: 20070720, end: 20070724

REACTIONS (5)
  - ATRIAL FLUTTER [None]
  - HOT FLUSH [None]
  - HYPERTENSION [None]
  - SENSORIMOTOR DISORDER [None]
  - TACHYCARDIA [None]
